FAERS Safety Report 7672689-5 (Version None)
Quarter: 2011Q3

REPORT INFORMATION
  Report Type: 
  Country: None (occurrence: None)
  Receive Date: 20110809
  Receipt Date: 20110802
  Transmission Date: 20111222
  Serious: Yes (Other)
  Sender: FDA-Public Use
  Company Number: PHHY2011US70165

PATIENT
  Age: 80 Year
  Sex: Male

DRUGS (1)
  1. AMIODARONE HCL [Suspect]
     Indication: ATRIAL FIBRILLATION
     Route: 042

REACTIONS (4)
  - UNRESPONSIVE TO STIMULI [None]
  - HYPOTHYROIDISM [None]
  - CORONARY ARTERY BYPASS [None]
  - VENTRICULAR TACHYCARDIA [None]
